FAERS Safety Report 12814592 (Version 1)
Quarter: 2016Q4

REPORT INFORMATION
  Report Type: Spontaneous
  Country: JP (occurrence: JP)
  Receive Date: 20161005
  Receipt Date: 20161005
  Transmission Date: 20170207
  Serious: Yes (Disabling)
  Sender: FDA-Public Use
  Company Number: JP-ELI_LILLY_AND_COMPANY-JP201609002369

PATIENT
  Age: 68 Year
  Sex: Male

DRUGS (9)
  1. CARBOPLATIN. [Concomitant]
     Active Substance: CARBOPLATIN
     Indication: NEOPLASM MALIGNANT
  2. DIGOSIN [Concomitant]
     Active Substance: DIGOXIN
  3. ELIQUIS [Concomitant]
     Active Substance: APIXABAN
  4. ZOPICLONE [Concomitant]
     Active Substance: ZOPICLONE
  5. MAGMITT [Concomitant]
     Active Substance: MAGNESIUM OXIDE
  6. ALIMTA [Suspect]
     Active Substance: PEMETREXED DISODIUM
     Indication: NEOPLASM MALIGNANT
     Dosage: UNK
     Route: 042
     Dates: end: 2016
  7. METHYCOBAL [Concomitant]
     Active Substance: METHYLCOBALAMIN
  8. PANVITAN                           /05664401/ [Concomitant]
  9. TAMSULOSIN HYDROCHLORIDE. [Concomitant]
     Active Substance: TAMSULOSIN HYDROCHLORIDE

REACTIONS (1)
  - Visual impairment [Not Recovered/Not Resolved]

NARRATIVE: CASE EVENT DATE: 201608
